FAERS Safety Report 11317762 (Version 1)
Quarter: 2015Q3

REPORT INFORMATION
  Report Type: Report from Study
  Country: AU (occurrence: AU)
  Receive Date: 20150728
  Receipt Date: 20150728
  Transmission Date: 20151125
  Serious: Yes (Other)
  Sender: FDA-Public Use
  Company Number: PHHY2014AU111525

PATIENT
  Age: 71 Year
  Sex: Female

DRUGS (1)
  1. ACLASTA [Suspect]
     Active Substance: ZOLEDRONIC ACID
     Indication: PRODUCT USED FOR UNKNOWN INDICATION
     Dosage: 5 MG, UNK
     Route: 042

REACTIONS (8)
  - Blood creatinine increased [Unknown]
  - Blood alkaline phosphatase increased [Unknown]
  - Gamma-glutamyltransferase increased [Unknown]
  - Chronic kidney disease [Unknown]
  - Globulins increased [Recovered/Resolved]
  - Glomerular filtration rate decreased [Unknown]
  - Blood urea increased [Unknown]
  - Blood chloride decreased [Unknown]

NARRATIVE: CASE EVENT DATE: 20120626
